FAERS Safety Report 13700958 (Version 1)
Quarter: 2017Q2

REPORT INFORMATION
  Report Type: Spontaneous
  Country: US (occurrence: US)
  Receive Date: 20170628
  Receipt Date: 20170628
  Transmission Date: 20170830
  Serious: Yes (Hospitalization, Other)
  Sender: FDA-Public Use
  Company Number: None

PATIENT
  Age: 71 Year
  Sex: Female
  Weight: 156.9 kg

DRUGS (1)
  1. ELIQUIS [Suspect]
     Active Substance: APIXABAN
     Indication: ATRIAL FIBRILLATION
     Dosage: ?          OTHER DOSE:MG;?TWICE A DAY ORAL
     Route: 048
     Dates: start: 20150702, end: 20170626

REACTIONS (3)
  - Spontaneous haematoma [None]
  - Splenic haematoma [None]
  - Hepatic haematoma [None]

NARRATIVE: CASE EVENT DATE: 20170626
